FAERS Safety Report 10384518 (Version 2)
Quarter: 2014Q3

REPORT INFORMATION
  Report Type: Spontaneous
  Country: US (occurrence: US)
  Receive Date: 20140814
  Receipt Date: 20140826
  Transmission Date: 20150326
  Serious: No
  Sender: FDA-Public Use
  Company Number: US-SHIRE-US201404918

PATIENT
  Age: 71 Year
  Sex: Female
  Weight: 53.97 kg

DRUGS (2)
  1. SYNTHROID [Concomitant]
     Active Substance: LEVOTHYROXINE SODIUM
     Indication: HYPOTHYROIDISM
     Dosage: 37 ?G, 1X/DAY:QD
     Route: 048
     Dates: start: 1998
  2. PENTASA [Suspect]
     Active Substance: MESALAMINE
     Indication: CROHN^S DISEASE
     Dosage: 4 G (8 OF 500 MG CAPSULES), PER DAY
     Route: 048
     Dates: start: 20140728

REACTIONS (5)
  - Weight increased [Not Recovered/Not Resolved]
  - Off label use [Not Recovered/Not Resolved]
  - Feeling jittery [Not Recovered/Not Resolved]
  - Adverse event [Unknown]
  - Weight decreased [Unknown]

NARRATIVE: CASE EVENT DATE: 201407
